FAERS Safety Report 4970331-5 (Version None)
Quarter: 2006Q2

REPORT INFORMATION
  Report Type: 
  Country: None (occurrence: None)
  Receive Date: 20060406
  Receipt Date: 20060320
  Transmission Date: 20061013
  Serious: Yes (Death, Hospitalization)
  Sender: FDA-Public Use
  Company Number: US_0506119559

PATIENT
  Age: 46 Year
  Sex: Female
  Weight: 95.5 kg

DRUGS (4)
  1. F1J-US-HMDR DULOXETINE EFFICACY IN MDD D (DULOXETINE HYDROCHLORIDE) CA [Suspect]
     Indication: MAJOR DEPRESSION
     Dosage: 120 MG, DAILY (1/D), ORAL
     Route: 048
     Dates: start: 20050325, end: 20050607
  2. ADVAIR DISKUS 100/50 [Concomitant]
  3. ALBUTEROL [Concomitant]
  4. COMBIVENT [Concomitant]

REACTIONS (24)
  - AREFLEXIA [None]
  - ASTHMA [None]
  - BACTERIAL INFECTION [None]
  - BLOOD BICARBONATE DECREASED [None]
  - BLOOD PH DECREASED [None]
  - BLOOD TEST ABNORMAL [None]
  - BRAIN OEDEMA [None]
  - BRAIN STEM SYNDROME [None]
  - BRONCHOSCOPY [None]
  - BRONCHOSCOPY ABNORMAL [None]
  - CARBON DIOXIDE DECREASED [None]
  - CARDIAC ARREST [None]
  - CONDITION AGGRAVATED [None]
  - CONVULSION [None]
  - DRUG ABUSER [None]
  - DRUG SCREEN POSITIVE [None]
  - ELECTROENCEPHALOGRAM ABNORMAL [None]
  - LOSS OF CONSCIOUSNESS [None]
  - OPIATES POSITIVE [None]
  - PO2 DECREASED [None]
  - PULMONARY CONGESTION [None]
  - SINUS TACHYCARDIA [None]
  - SINUSITIS [None]
  - SKIN DISCOLOURATION [None]
